FAERS Safety Report 25736122 (Version 1)
Quarter: 2025Q3

REPORT INFORMATION
  Report Type: Spontaneous
  Country: US (occurrence: US)
  Receive Date: 20250828
  Receipt Date: 20250828
  Transmission Date: 20251021
  Serious: No
  Sender: SANOFI AVENTIS
  Company Number: US-SA-2025SA256579

PATIENT
  Sex: Female

DRUGS (5)
  1. ALPROLIX [Suspect]
     Active Substance: EFTRENONACOG ALFA
     Indication: Haemorrhage
     Dosage: INFUSE 8819 UNITS (2 VIALS OF 4167 IU AND 1 UNIT OF 485 IU) INTRAVENOUSLY ONCE A WEEK AND AS NEEDED
     Route: 042
  2. ALPROLIX [Suspect]
     Active Substance: EFTRENONACOG ALFA
     Indication: Haemorrhage
     Dosage: INFUSE 8819 UNITS (2 VIALS OF 4167 IU AND 1 UNIT OF 485 IU) INTRAVENOUSLY ONCE A WEEK AND AS NEEDED
     Route: 042
  3. ALPROLIX [Suspect]
     Active Substance: EFTRENONACOG ALFA
     Route: 042
  4. ALPROLIX [Suspect]
     Active Substance: EFTRENONACOG ALFA
     Route: 042
  5. CELEBREX [Concomitant]
     Active Substance: CELECOXIB

REACTIONS (2)
  - Spontaneous haemorrhage [Unknown]
  - Pain [Unknown]
